FAERS Safety Report 5723372-4 (Version None)
Quarter: 2008Q2

REPORT INFORMATION
  Report Type: 
  Country: None (occurrence: None)
  Receive Date: 20080430
  Receipt Date: 20080320
  Transmission Date: 20081010
  Serious: No
  Sender: FDA-Public Use
  Company Number: US-BAYER-200818063NA

PATIENT
  Age: 19 Year
  Sex: Female
  Weight: 65 kg

DRUGS (2)
  1. MAGNEVIST SINGLE USE 15 ML VIAL [Suspect]
     Indication: NUCLEAR MAGNETIC RESONANCE IMAGING BRAIN
     Dosage: TOTAL DAILY DOSE: 13 ML  UNIT DOSE: 15 ML
     Route: 042
     Dates: start: 20080320, end: 20080320
  2. TYLENOL [Concomitant]

REACTIONS (2)
  - NAUSEA [None]
  - VOMITING [None]
